FAERS Safety Report 6802740-3 (Version None)
Quarter: 2010Q2

REPORT INFORMATION
  Report Type: 
  Country: None (occurrence: None)
  Receive Date: 20100628
  Receipt Date: 20100617
  Transmission Date: 20101027
  Serious: Yes (Hospitalization)
  Sender: FDA-Public Use
  Company Number: BE-CELGENEUS-013-C5013-10010119

PATIENT
  Sex: Male
  Weight: 93 kg

DRUGS (12)
  1. CC-5013 [Suspect]
     Indication: MULTIPLE MYELOMA
     Route: 048
     Dates: start: 20100125
  2. CC-5013 [Suspect]
     Route: 048
     Dates: start: 20091217, end: 20100101
  3. CC-5013 [Suspect]
     Route: 048
     Dates: start: 20091110
  4. DEXAMETHASONE [Suspect]
     Indication: MULTIPLE MYELOMA
     Dates: start: 20100112
  5. LISINOPRIL [Concomitant]
     Indication: ATRIAL FIBRILLATION
     Route: 048
  6. ACYCLOVIR [Concomitant]
     Indication: PROPHYLAXIS
     Route: 048
     Dates: end: 20100101
  7. CLONAZEPAM [Concomitant]
     Route: 048
  8. ESCITALOPRAM [Concomitant]
     Indication: DEPRESSION
     Route: 048
  9. NADROPARIN [Concomitant]
     Route: 058
     Dates: start: 20091210, end: 20100106
  10. FENTANYL [Concomitant]
     Indication: PAIN
     Route: 062
  11. MORPHINE [Concomitant]
     Indication: PAIN
     Route: 048
  12. AMIODARONE [Concomitant]
     Indication: ATRIAL FIBRILLATION
     Route: 048
     Dates: start: 20081001

REACTIONS (1)
  - PNEUMONIA [None]
